FAERS Safety Report 12165218 (Version 1)
Quarter: 2016Q1

REPORT INFORMATION
  Report Type: Report from Study
  Country: US (occurrence: US)
  Receive Date: 20160309
  Receipt Date: 20160309
  Transmission Date: 20160526
  Serious: No
  Sender: FDA-Public Use
  Company Number: US-ABBVIE-16P-163-1545396-00

PATIENT
  Age: 25 Year
  Sex: Female

DRUGS (1)
  1. LUPRON DEPOT [Suspect]
     Active Substance: LEUPROLIDE ACETATE
     Indication: ENDOMETRIOSIS
     Route: 050
     Dates: start: 20151016

REACTIONS (7)
  - Irritability [Not Recovered/Not Resolved]
  - Depression [Not Recovered/Not Resolved]
  - Rash [Not Recovered/Not Resolved]
  - Anxiety [Not Recovered/Not Resolved]
  - Drug dose omission [Not Recovered/Not Resolved]
  - Abdominal pain lower [Not Recovered/Not Resolved]
  - Hot flush [Not Recovered/Not Resolved]

NARRATIVE: CASE EVENT DATE: 20151017
